FAERS Safety Report 14936823 (Version 1)
Quarter: 2018Q2

REPORT INFORMATION
  Report Type: Spontaneous
  Country: ES (occurrence: ES)
  Receive Date: 20180525
  Receipt Date: 20180525
  Transmission Date: 20180711
  Serious: Yes (Other)
  Sender: FDA-Public Use
  Company Number: ES-ROCHE-2127120

PATIENT
  Age: 60 Year
  Sex: Male
  Weight: 97 kg

DRUGS (3)
  1. SOVALDI [Suspect]
     Active Substance: SOFOSBUVIR
     Indication: CHRONIC HEPATITIS C
     Dosage: MOST RECENT DOSE ON 15/JUN/2015
     Route: 065
     Dates: start: 20150323
  2. DACLATASVIR. [Suspect]
     Active Substance: DACLATASVIR
     Indication: CHRONIC HEPATITIS C
     Dosage: MOST RECENT DOSE ON 15/JUN/2015
     Route: 065
     Dates: start: 20150323
  3. RIBAVIRIN. [Suspect]
     Active Substance: RIBAVIRIN
     Indication: CHRONIC HEPATITIS C
     Dosage: MOST RECENT DOSE ON 15/JUN/2015
     Route: 065
     Dates: start: 20150323

REACTIONS (4)
  - Ascites [Recovered/Resolved]
  - Genotype drug resistance test positive [Unknown]
  - Hepatocellular carcinoma [Recovered/Resolved]
  - Treatment failure [Unknown]

NARRATIVE: CASE EVENT DATE: 2016
